FAERS Safety Report 5663102-8 (Version None)
Quarter: 2008Q1

REPORT INFORMATION
  Report Type: 
  Country: None (occurrence: None)
  Receive Date: 20080313
  Receipt Date: 20080306
  Transmission Date: 20080703
  Serious: Yes (Hospitalization)
  Sender: FDA-Public Use
  Company Number: A0713826A

PATIENT
  Sex: Female

DRUGS (5)
  1. CEFTIN [Suspect]
     Indication: UPPER RESPIRATORY TRACT INFECTION
     Dosage: 250MG TWICE PER DAY
     Route: 048
     Dates: start: 20080201
  2. CEFTIN [Suspect]
     Dosage: 500MG TWICE PER DAY
     Route: 048
     Dates: start: 20030301
  3. CEFUROXIME AXETIL [Suspect]
     Indication: UPPER RESPIRATORY TRACT INFECTION
     Dosage: 500MG TWICE PER DAY
     Route: 048
     Dates: start: 20050301
  4. INDERAL [Concomitant]
  5. PEPCID [Concomitant]

REACTIONS (7)
  - ABDOMINAL PAIN [None]
  - DRUG INEFFECTIVE [None]
  - FLUSHING [None]
  - GASTROOESOPHAGEAL REFLUX DISEASE [None]
  - HYPERSENSITIVITY [None]
  - MUSCLE SPASMS [None]
  - PRURITUS [None]
